FAERS Safety Report 19743785 (Version 3)
Quarter: 2021Q4

REPORT INFORMATION
  Report Type: Spontaneous
  Country: BR (occurrence: BR)
  Receive Date: 20210825
  Receipt Date: 20211004
  Transmission Date: 20220303
  Serious: Yes (Other)
  Sender: FDA-Public Use
  Company Number: BR-SA-SAC20210820000728

PATIENT
  Age: 25 Year
  Sex: Male
  Weight: 74 kg

DRUGS (4)
  1. LANTUS [Suspect]
     Active Substance: INSULIN GLARGINE
     Indication: Diabetes mellitus
     Dosage: UNK UNK, QD
     Route: 058
     Dates: start: 2008
  2. APIDRA [Concomitant]
     Active Substance: INSULIN GLULISINE
     Indication: Diabetes mellitus
     Dosage: UNK UNK, Q6H
     Route: 058
     Dates: start: 2008, end: 2019
  3. ENALAPRIL [Concomitant]
     Active Substance: ENALAPRIL
     Indication: Blood pressure abnormal
     Dosage: 10 MG, Q12H
     Route: 048
     Dates: start: 2013
  4. NOVORAPID [Concomitant]
     Active Substance: INSULIN ASPART
     Indication: Diabetes mellitus
     Dosage: UNK, Q6H
     Route: 058
     Dates: start: 2010

REACTIONS (4)
  - Diabetic metabolic decompensation [Unknown]
  - Drug dose omission by device [Unknown]
  - Device defective [Unknown]
  - Product storage error [Unknown]

NARRATIVE: CASE EVENT DATE: 20200901
